FAERS Safety Report 8388485-X (Version None)
Quarter: 2012Q2

REPORT INFORMATION
  Report Type: 
  Country: None (occurrence: None)
  Receive Date: 20120525
  Receipt Date: 20120515
  Transmission Date: 20120825
  Serious: Yes (Hospitalization)
  Sender: FDA-Public Use
  Company Number: JP-ROCHE-1070978

PATIENT
  Sex: Male

DRUGS (4)
  1. XELODA [Suspect]
     Indication: COLON CANCER
     Route: 048
     Dates: start: 20120207, end: 20120408
  2. WARFARIN SODIUM [Concomitant]
     Dosage: DOSAGE IS UNCERTAIN.
     Route: 048
     Dates: end: 20120408
  3. ASPIRIN [Concomitant]
     Route: 048
     Dates: start: 20120410
  4. ASPIRIN [Concomitant]
     Dosage: DOSAGE IS UNCERTAIN.
     Route: 048
     Dates: end: 20120408

REACTIONS (6)
  - GAIT DISTURBANCE [None]
  - HAEMORRHAGE SUBCUTANEOUS [None]
  - NAUSEA [None]
  - HAEMOGLOBIN DECREASED [None]
  - PROTHROMBIN TIME PROLONGED [None]
  - ALTERED STATE OF CONSCIOUSNESS [None]
